FAERS Safety Report 15629943 (Version 1)
Quarter: 2018Q4

REPORT INFORMATION
  Report Type: Spontaneous
  Country: NO (occurrence: NO)
  Receive Date: 20181117
  Receipt Date: 20181117
  Transmission Date: 20190205
  Serious: Yes (Hospitalization)
  Sender: FDA-Public Use
  Company Number: NO-MYLANLABS-2018M1085860

PATIENT
  Age: 49 Year
  Sex: Male

DRUGS (8)
  1. PREDNISOLONE. [Suspect]
     Active Substance: PREDNISOLONE
     Indication: PNEUMONITIS
     Route: 065
  2. CISPLATIN. [Suspect]
     Active Substance: CISPLATIN
     Indication: SEMINOMA
     Route: 065
  3. PREDNISOLONE. [Suspect]
     Active Substance: PREDNISOLONE
     Route: 065
  4. BLEOMYCIN [Suspect]
     Active Substance: BLEOMYCIN SULFATE
     Indication: SEMINOMA
     Route: 065
  5. TETRACYCLINE [Concomitant]
     Active Substance: TETRACYCLINE
     Indication: PNEUMONITIS
     Route: 065
  6. ETOPOSIDE. [Suspect]
     Active Substance: ETOPOSIDE
     Indication: SEMINOMA
     Route: 065
  7. PREDNISOLONE. [Suspect]
     Active Substance: PREDNISOLONE
     Route: 065
  8. PREDNISOLONE. [Suspect]
     Active Substance: PREDNISOLONE
     Dosage: AFTER 3 WEEKS
     Route: 065

REACTIONS (8)
  - Haemophilus infection [Unknown]
  - Cytomegalovirus infection [Unknown]
  - Pneumothorax [Recovering/Resolving]
  - Interstitial lung disease [Recovering/Resolving]
  - Candida infection [Unknown]
  - Pneumocystis jirovecii pneumonia [Unknown]
  - Pneumonitis [Recovering/Resolving]
  - Emphysema [Recovering/Resolving]
